FAERS Safety Report 12094352 (Version 1)
Quarter: 2016Q1

REPORT INFORMATION
  Report Type: Spontaneous
  Country: US (occurrence: US)
  Receive Date: 20160219
  Receipt Date: 20160219
  Transmission Date: 20160526
  Serious: Yes (Other)
  Sender: FDA-Public Use
  Company Number: US-TEVA-636101USA

PATIENT
  Age: 34 Year
  Sex: Male
  Weight: 58.96 kg

DRUGS (1)
  1. FEXOFENADINE [Suspect]
     Active Substance: FEXOFENADINE\FEXOFENADINE HYDROCHLORIDE
     Indication: EYE PRURITUS
     Dosage: 180 MILLIGRAM DAILY;
     Route: 048
     Dates: start: 20160120, end: 20160122

REACTIONS (4)
  - Expired product administered [Unknown]
  - Haematochezia [Recovered/Resolved]
  - Abdominal discomfort [Recovered/Resolved]
  - Faeces discoloured [Recovered/Resolved]

NARRATIVE: CASE EVENT DATE: 20160120
